FAERS Safety Report 7360511-6 (Version None)
Quarter: 2011Q1

REPORT INFORMATION
  Report Type: 
  Country: None (occurrence: None)
  Receive Date: 20110318
  Receipt Date: 20110315
  Transmission Date: 20110831
  Serious: No
  Sender: FDA-Public Use
  Company Number: US-PFIZER INC-2011057208

PATIENT
  Sex: Female
  Weight: 68.027 kg

DRUGS (2)
  1. METFORMIN [Concomitant]
     Indication: DIABETES MELLITUS
     Dosage: UNK
  2. QUINAPRIL HCL [Suspect]
     Indication: HYPERTENSION
     Dosage: UNK
     Route: 048
     Dates: start: 20100101

REACTIONS (3)
  - MYALGIA [None]
  - NAUSEA [None]
  - BLOOD GLUCOSE INCREASED [None]
